FAERS Safety Report 15098411 (Version 1)
Quarter: 2018Q3

REPORT INFORMATION
  Report Type: Spontaneous
  Country: US (occurrence: US)
  Receive Date: 20180702
  Receipt Date: 20180702
  Transmission Date: 20181010
  Serious: Yes (Hospitalization)
  Sender: FDA-Public Use
  Company Number: US-BRAINTREE LABORATORIES-180320-1

PATIENT
  Age: 63 Year
  Sex: Female

DRUGS (1)
  1. SUPREP BOWEL PREP [Suspect]
     Active Substance: MAGNESIUM SULFATE\POTASSIUM SULFATE\SODIUM SULFATE
     Indication: COLONOSCOPY
     Dosage: 1 X 6 OZ. BOTTLE
     Route: 048
     Dates: start: 20180611, end: 20180611

REACTIONS (8)
  - Dizziness [None]
  - Vomiting [None]
  - Blood pressure decreased [None]
  - Syncope [None]
  - Colitis [None]
  - Blood pressure increased [None]
  - Blood potassium decreased [None]
  - Nausea [None]

NARRATIVE: CASE EVENT DATE: 20180611
